FAERS Safety Report 14538578 (Version 1)
Quarter: 2018Q1

REPORT INFORMATION
  Report Type: Spontaneous
  Country: CA (occurrence: CA)
  Receive Date: 20180216
  Receipt Date: 20180216
  Transmission Date: 20180509
  Serious: Yes (Other)
  Sender: FDA-Public Use
  Company Number: CA-BAYER-2018-029276

PATIENT

DRUGS (1)
  1. AVELOX [Suspect]
     Active Substance: MOXIFLOXACIN HYDROCHLORIDE
     Dosage: UNK
     Dates: start: 20100714

REACTIONS (4)
  - Chest pain [None]
  - Neuropathy peripheral [None]
  - Retinal detachment [None]
  - Platelet count decreased [None]

NARRATIVE: CASE EVENT DATE: 20100715
